FAERS Safety Report 25158478 (Version 2)
Quarter: 2025Q2

REPORT INFORMATION
  Report Type: Spontaneous
  Country: BE (occurrence: BE)
  Receive Date: 20250404
  Receipt Date: 20250411
  Transmission Date: 20250716
  Serious: Yes (Other)
  Sender: ACCORD
  Company Number: BE-Accord-476694

PATIENT
  Age: 51 Year
  Sex: Female

DRUGS (9)
  1. CARBOPLATIN [Suspect]
     Active Substance: CARBOPLATIN
     Indication: Cervix cancer metastatic
     Dosage: COMPLETING SIX COURSES
     Dates: start: 202209, end: 202301
  2. PACLITAXEL [Suspect]
     Active Substance: PACLITAXEL
     Indication: Cervix cancer metastatic
     Dosage: COMPLETING SIX COURSES
     Dates: start: 202209, end: 202301
  3. BEVACIZUMAB [Concomitant]
     Active Substance: BEVACIZUMAB
     Indication: Cervix carcinoma
  4. CARBOPLATIN [Suspect]
     Active Substance: CARBOPLATIN
     Indication: Metastases to lung
     Dates: start: 202209, end: 202301
  5. CARBOPLATIN [Suspect]
     Active Substance: CARBOPLATIN
     Indication: Metastases to liver
     Dates: start: 202209, end: 202301
  6. CARBOPLATIN [Suspect]
     Active Substance: CARBOPLATIN
     Indication: Metastases to lymph nodes
     Dates: start: 202209, end: 202301
  7. PACLITAXEL [Suspect]
     Active Substance: PACLITAXEL
     Indication: Metastases to lung
     Dates: start: 202209, end: 202301
  8. PACLITAXEL [Suspect]
     Active Substance: PACLITAXEL
     Indication: Metastases to liver
     Dates: start: 202209, end: 202301
  9. PACLITAXEL [Suspect]
     Active Substance: PACLITAXEL
     Indication: Metastases to lymph nodes
     Dates: start: 202209, end: 202301

REACTIONS (4)
  - Retinal toxicity [Unknown]
  - Off label use [Unknown]
  - Maculopathy [Unknown]
  - Retinal pigment epitheliopathy [Unknown]

NARRATIVE: CASE EVENT DATE: 20220901
